FAERS Safety Report 4502715-3 (Version None)
Quarter: 2004Q4

REPORT INFORMATION
  Report Type: 
  Country: None (occurrence: None)
  Receive Date: 20041112
  Receipt Date: 20041102
  Transmission Date: 20050328
  Serious: Yes (Hospitalization)
  Sender: FDA-Public Use
  Company Number: 2004UW20464

PATIENT
  Age: 30 Year
  Sex: Female
  Weight: 63.5036 kg

DRUGS (1)
  1. SEROQUEL [Suspect]
     Indication: MANIA
     Dosage: 800 MG DAILY PO
     Route: 048
     Dates: start: 20040908

REACTIONS (3)
  - FEELING COLD [None]
  - HOT FLUSH [None]
  - NIGHT SWEATS [None]
